FAERS Safety Report 24746867 (Version 2)
Quarter: 2025Q1

REPORT INFORMATION
  Report Type: Spontaneous
  Country: GB (occurrence: GB)
  Receive Date: 20241218
  Receipt Date: 20250105
  Transmission Date: 20250408
  Serious: Yes (Life-Threatening, Other)
  Sender: AUROBINDO
  Company Number: GB-MHRA-MED-202412041751544040-SBJHZ

PATIENT
  Age: 50 Year
  Sex: Female
  Weight: 68 kg

DRUGS (2)
  1. CITALOPRAM HYDROBROMIDE [Suspect]
     Active Substance: CITALOPRAM HYDROBROMIDE
     Indication: Major depression
     Dosage: 40 MILLIGRAM, ONCE A DAY [40MG MORNING]
     Route: 065
     Dates: start: 20220701, end: 20240930
  2. CITALOPRAM [Suspect]
     Active Substance: CITALOPRAM
     Indication: Major depression
     Route: 065
     Dates: start: 20220701, end: 20240930

REACTIONS (6)
  - Amnesia [Not Recovered/Not Resolved]
  - Major depression [Not Recovered/Not Resolved]
  - Suicide attempt [Recovering/Resolving]
  - Medication error [Unknown]
  - Insomnia [Not Recovered/Not Resolved]
  - Withdrawal syndrome [Unknown]

NARRATIVE: CASE EVENT DATE: 20220701
